FAERS Safety Report 6728187-6 (Version None)
Quarter: 2010Q2

REPORT INFORMATION
  Report Type: 
  Country: None (occurrence: None)
  Receive Date: 20100517
  Receipt Date: 20100506
  Transmission Date: 20101027
  Serious: Yes (Other)
  Sender: FDA-Public Use
  Company Number: B0649045A

PATIENT
  Age: 41 Year
  Sex: Female

DRUGS (1)
  1. CEFUROXIME SODIUM [Suspect]
     Indication: RHEUMATIC FEVER
     Dosage: 1.5G TWICE PER DAY
     Route: 042

REACTIONS (6)
  - ANURIA [None]
  - CHILLS [None]
  - HYPERPYREXIA [None]
  - HYPERSENSITIVITY [None]
  - NAUSEA [None]
  - RENAL FAILURE ACUTE [None]
